FAERS Safety Report 25240613 (Version 1)
Quarter: 2025Q2

REPORT INFORMATION
  Report Type: Report from Study
  Country: DE (occurrence: DE)
  Receive Date: 20250425
  Receipt Date: 20250425
  Transmission Date: 20250716
  Serious: Yes (Hospitalization, Other)
  Sender: PFIZER
  Company Number: DE-NOVPHSZ-PHHY2018DE066797

PATIENT
  Sex: Female

DRUGS (11)
  1. METHOTREXATE SODIUM [Suspect]
     Active Substance: METHOTREXATE SODIUM
     Dates: start: 20160719
  2. METHOTREXATE SODIUM [Suspect]
     Active Substance: METHOTREXATE SODIUM
     Dates: start: 20161012
  3. METHOTREXATE SODIUM [Suspect]
     Active Substance: METHOTREXATE SODIUM
     Dates: start: 20170105
  4. METHOTREXATE SODIUM [Suspect]
     Active Substance: METHOTREXATE SODIUM
     Dates: start: 20170823
  5. METHOTREXATE SODIUM [Suspect]
     Active Substance: METHOTREXATE SODIUM
     Dates: start: 20180106
  6. ERELZI [Suspect]
     Active Substance: ETANERCEPT-SZZS
     Indication: Rheumatoid arthritis
     Dosage: 50 MG, QW
     Route: 058
     Dates: start: 201803, end: 20241203
  7. SIMPONI [Suspect]
     Active Substance: GOLIMUMAB
     Route: 065
     Dates: start: 201607, end: 201609
  8. SIMPONI [Suspect]
     Active Substance: GOLIMUMAB
     Route: 065
     Dates: start: 201701, end: 201707
  9. ETANERCEPT [Suspect]
     Active Substance: ETANERCEPT
     Route: 065
     Dates: start: 201708, end: 201709
  10. ETANERCEPT [Suspect]
     Active Substance: ETANERCEPT
     Route: 065
     Dates: start: 201802, end: 201803
  11. ORENCIA [Suspect]
     Active Substance: ABATACEPT
     Route: 065
     Dates: start: 20241210

REACTIONS (9)
  - Angina pectoris [Recovered/Resolved]
  - Coronary artery disease [Recovered/Resolved]
  - Concomitant disease aggravated [Recovered/Resolved]
  - Aortic valve disease mixed [Unknown]
  - Depression [Unknown]
  - Left ventricular dysfunction [Recovered/Resolved]
  - Periodontitis [Recovered/Resolved]
  - Urinary tract infection [Unknown]
  - Asthma [Unknown]

NARRATIVE: CASE EVENT DATE: 20180604
